FAERS Safety Report 17545294 (Version 4)
Quarter: 2020Q2

REPORT INFORMATION
  Report Type: Spontaneous
  Country: US (occurrence: US)
  Receive Date: 20200316
  Receipt Date: 20200520
  Transmission Date: 20200713
  Serious: No
  Sender: FDA-Public Use
  Company Number: US-JNJFOC-20200316907

PATIENT
  Age: 44 Year
  Sex: Male
  Weight: 86.26 kg

DRUGS (2)
  1. TREMFYA [Suspect]
     Active Substance: GUSELKUMAB
     Indication: PSORIASIS
     Route: 058
     Dates: start: 201907
  2. TREMFYA [Suspect]
     Active Substance: GUSELKUMAB
     Indication: ACCIDENTAL EXPOSURE TO PRODUCT

REACTIONS (5)
  - Product dose omission [Unknown]
  - Product use issue [Unknown]
  - Accidental exposure to product [Unknown]
  - Off label use [Unknown]
  - Device malfunction [Unknown]

NARRATIVE: CASE EVENT DATE: 201907
